FAERS Safety Report 7517594-X (Version None)
Quarter: 2011Q2

REPORT INFORMATION
  Report Type: 
  Country: None (occurrence: None)
  Receive Date: 20110601
  Receipt Date: 20110519
  Transmission Date: 20111010
  Serious: Yes (Hospitalization, Other)
  Sender: FDA-Public Use
  Company Number: US-ELI_LILLY_AND_COMPANY-US201105000988

PATIENT

DRUGS (2)
  1. FORTEO [Suspect]
     Indication: OSTEOPOROSIS
     Dosage: UNK UNK, UNKNOWN
     Route: 065
     Dates: start: 20110101
  2. FORTEO [Suspect]
     Dosage: 20 UG, QD
     Route: 065

REACTIONS (13)
  - CHILLS [None]
  - HEART RATE INCREASED [None]
  - DISORIENTATION [None]
  - DEHYDRATION [None]
  - DECREASED APPETITE [None]
  - MEMORY IMPAIRMENT [None]
  - GENERAL PHYSICAL HEALTH DETERIORATION [None]
  - FRUSTRATION [None]
  - LOSS OF CONSCIOUSNESS [None]
  - LETHARGY [None]
  - HYPERSOMNIA [None]
  - HYPERHIDROSIS [None]
  - MEDICATION ERROR [None]
